FAERS Safety Report 23092985 (Version 2)
Quarter: 2023Q4

REPORT INFORMATION
  Report Type: Spontaneous
  Country: CH (occurrence: CH)
  Receive Date: 20231021
  Receipt Date: 20231023
  Transmission Date: 20240110
  Serious: Yes (Hospitalization, Other)
  Sender: FDA-Public Use
  Company Number: None

PATIENT
  Age: 70 Year
  Sex: Male
  Weight: 58 kg

DRUGS (17)
  1. TORSEMIDE [Suspect]
     Active Substance: TORSEMIDE
     Indication: Cardiac failure
     Dosage: 40 MILLIGRAM DAILY; 10MG 2-2-0, START DATE MAY BE EARLIER, AVAILABLE DOCUMENTATION STARTS IN 2023/03
     Route: 048
     Dates: start: 202303, end: 20230907
  2. NEO-MERCAZOLE [Suspect]
     Active Substance: CARBIMAZOLE
     Indication: Hyperthyroidism
     Dosage: 30 MILLIGRAM DAILY; 30MG DAILY
     Route: 048
     Dates: start: 20230412, end: 20230907
  3. NEO-MERCAZOLE [Suspect]
     Active Substance: CARBIMAZOLE
     Indication: Hyperthyroidism
     Dosage: 10 MILLIGRAM DAILY;
     Route: 048
     Dates: start: 20230410, end: 20230411
  4. ALDACTONE [Suspect]
     Active Substance: SPIRONOLACTONE
     Indication: Cardiac failure
     Dosage: 75 MILLIGRAM DAILY; 25MG 2-1-0, START DATE MAY BE EARLIER, AVAILABLE DOCUMENTATION STARTS IN 2023/03
     Route: 048
     Dates: start: 202303, end: 20230907
  5. CORDARONE [Concomitant]
     Active Substance: AMIODARONE HYDROCHLORIDE
     Indication: Product used for unknown indication
     Dosage: 200 MILLIGRAM DAILY;
     Route: 048
     Dates: start: 202301
  6. CORDARONE [Concomitant]
     Active Substance: AMIODARONE HYDROCHLORIDE
     Route: 048
     Dates: start: 201811, end: 2019
  7. ELIQUIS [Concomitant]
     Active Substance: APIXABAN
     Indication: Product used for unknown indication
     Dosage: 10 MILLIGRAM DAILY;
     Route: 048
     Dates: start: 202301
  8. PLAVIX [Concomitant]
     Active Substance: CLOPIDOGREL BISULFATE
     Indication: Product used for unknown indication
     Dosage: 75 MILLIGRAM DAILY; START DATE MAY BE EARLIER, AVAILABLE DOCUMENTATION STARTS IN 2023/03
     Route: 048
     Dates: start: 202303
  9. BISOPROLOL [Concomitant]
     Active Substance: BISOPROLOL\BISOPROLOL FUMARATE
     Indication: Product used for unknown indication
     Dosage: 3.75 MILLIGRAM DAILY; 2.5MG 1-0-0.5
     Route: 048
  10. DAPAGLIFLOZIN [Concomitant]
     Active Substance: DAPAGLIFLOZIN
     Indication: Product used for unknown indication
     Dosage: 10 MILLIGRAM DAILY; START DATE MAY BE EARLIER, AVAILABLE DOCUMENTATION STARTS IN 2023/03
     Route: 048
     Dates: start: 202303
  11. CRESTOR [Concomitant]
     Active Substance: ROSUVASTATIN CALCIUM
     Indication: Product used for unknown indication
     Dosage: 5 MILLIGRAM DAILY; START DATE MAY BE EARLIER, AVAILABLE DOCUMENTATION STARTS IN 2023/03
     Route: 048
     Dates: start: 202303
  12. KCL [Concomitant]
     Active Substance: POTASSIUM CHLORIDE
     Indication: Product used for unknown indication
     Dosage: 90 MILLIMOL DAILY; 10MMOL 3-3-3, KCL RETARD
     Route: 048
     Dates: start: 202303
  13. MAGNESIUM ASPARTATE HYDROCHLORIDE [Concomitant]
     Active Substance: MAGNESIUM ASPARTATE HYDROCHLORIDE
     Indication: Product used for unknown indication
     Dosage: 10 MILLIMOL DAILY; START DATE MAY BE EARLIER, AVAILABLE DOCUMENTATION STARTS IN 2023/03
     Route: 048
     Dates: start: 202303
  14. PANTOZOL [Concomitant]
     Active Substance: PANTOPRAZOLE SODIUM
     Indication: Product used for unknown indication
     Dosage: 40 MILLIGRAM DAILY; START DATE MAY BE EARLIER, AVAILABLE DOCUMENTATION STARTS IN 2023/03
     Route: 048
     Dates: start: 202303
  15. CHOLECALCIFEROL [Concomitant]
     Active Substance: CHOLECALCIFEROL
     Indication: Product used for unknown indication
     Dosage: .4 ML DAILY; 4000IE/ML - 0.4ML 1X/DAY, START DATE MAY BE EARLIER, AVAILABLE DOCUMENTATION STARTS IN
     Route: 048
     Dates: start: 202303
  16. CETIRIZINE HYDROCHLORIDE [Concomitant]
     Active Substance: CETIRIZINE HYDROCHLORIDE
     Indication: Product used for unknown indication
     Dosage: 10 MILLIGRAM DAILY; START DATE MAY BE EARLIER, AVAILABLE DOCUMENTATION STARTS IN 2023/03
     Route: 048
     Dates: start: 202303
  17. ASCORBIC ACID\MINERALS\VITAMINS [Concomitant]
     Active Substance: ASCORBIC ACID\MINERALS\VITAMINS
     Indication: Product used for unknown indication
     Dosage: 1 DOSAGE FORMS DAILY; START DATE MAY BE EARLIER, AVAILABLE DOCUMENTATION STARTS IN 2023/03
     Route: 048
     Dates: start: 202303

REACTIONS (2)
  - Hypothyroidism [Unknown]
  - Hyponatraemia [Recovered/Resolved]

NARRATIVE: CASE EVENT DATE: 20230907
